FAERS Safety Report 6456991-0 (Version None)
Quarter: 2009Q4

REPORT INFORMATION
  Report Type: 
  Country: None (occurrence: None)
  Receive Date: 20091125
  Receipt Date: 20091113
  Transmission Date: 20100525
  Serious: Yes (Death)
  Sender: FDA-Public Use
  Company Number: GB-PFIZER INC-2009291117

PATIENT
  Age: 70 Year
  Sex: Male

DRUGS (13)
  1. PREDNISOLONE [Suspect]
     Indication: PROSTATE CANCER
     Dosage: 5 MG, 2X/DAY
     Route: 048
     Dates: start: 20090820, end: 20090917
  2. BLINDED *NO SUBJECT DRUG [Suspect]
     Indication: PROSTATE CANCER METASTATIC
     Dosage: 37.5 MG, 1X/DAY
     Route: 048
     Dates: start: 20090820, end: 20090917
  3. BLINDED *PLACEBO [Suspect]
     Indication: PROSTATE CANCER METASTATIC
     Dosage: 37.5 MG, 1X/DAY
     Route: 048
     Dates: start: 20090820, end: 20090917
  4. BLINDED SUNITINIB MALATE [Suspect]
     Indication: PROSTATE CANCER METASTATIC
     Dosage: 37.5 MG, 1X/DAY
     Route: 048
     Dates: start: 20090820, end: 20090917
  5. LEVOTHYROXINE SODIUM [Concomitant]
     Indication: HYPOTHYROIDISM
     Dosage: 50 MG, 1X/DAY
     Route: 048
  6. METFORMIN [Concomitant]
     Indication: DIABETES MELLITUS
     Dosage: 1 G, 1X/DAY
     Route: 048
  7. GLICLAZIDE [Concomitant]
     Indication: DIABETES MELLITUS
     Dosage: 40 MG, 1X/DAY
     Route: 048
  8. LISINOPRIL [Concomitant]
     Indication: HYPERTENSION
     Dosage: 10 MG, 1X/DAY
     Route: 048
  9. ASPIRIN [Concomitant]
     Dosage: 75 MG, 1X/DAY
     Route: 048
  10. BETAMETHASONE [Concomitant]
     Indication: NEOPLASM MALIGNANT
     Dosage: 500 MG, 1X/DAY
     Route: 048
  11. ZOLADEX [Concomitant]
     Indication: NEOPLASM MALIGNANT
     Dosage: 3.75 MG, EVERY 3 MONTHS
     Route: 058
  12. CIPROFIBRATE [Concomitant]
     Indication: NEOPLASM MALIGNANT
     Dosage: 100 MG, UNK
     Route: 048
  13. TAMSULOSIN [Concomitant]
     Indication: NEOPLASM MALIGNANT
     Dosage: 400 UG, UNK
     Route: 048

REACTIONS (1)
  - DEATH [None]
